FAERS Safety Report 25750613 (Version 2)
Quarter: 2025Q3

REPORT INFORMATION
  Report Type: Spontaneous
  Country: US (occurrence: US)
  Receive Date: 20250902
  Receipt Date: 20250922
  Transmission Date: 20251020
  Serious: Yes (Hospitalization, Other)
  Sender: BAYER HEALTHCARE PHARMACEUTICALS INC.
  Company Number: US-BAYER-2025A114001

PATIENT
  Age: 29 Year
  Sex: Female

DRUGS (1)
  1. MIRENA [Suspect]
     Active Substance: LEVONORGESTREL
     Indication: Contraception
     Dosage: 20?G/DAY
     Route: 015
     Dates: start: 20181030

REACTIONS (6)
  - Ectopic pregnancy with contraceptive device [Recovering/Resolving]
  - Ruptured ectopic pregnancy [Recovering/Resolving]
  - Pelvic pain [None]
  - Drug ineffective [None]
  - Amenorrhoea [None]
  - Abdominal pain lower [None]

NARRATIVE: CASE EVENT DATE: 20250101
